FAERS Safety Report 19361967 (Version 1)
Quarter: 2021Q2

REPORT INFORMATION
  Report Type: Report from Study
  Country: EG (occurrence: EG)
  Receive Date: 20210601
  Receipt Date: 20210601
  Transmission Date: 20210717
  Serious: Yes (Death, Life-Threatening)
  Sender: FDA-Public Use
  Company Number: NVSC2021EG122522

PATIENT
  Age: 52 Year
  Sex: Male

DRUGS (1)
  1. ENTRESTO [Suspect]
     Active Substance: SACUBITRIL\VALSARTAN
     Indication: CARDIAC FAILURE
     Dosage: 100 MG (ONE TABLET), BID
     Route: 048
     Dates: start: 20190530

REACTIONS (6)
  - Dyspnoea [Recovered/Resolved]
  - Death [Fatal]
  - Thrombosis [Recovered/Resolved]
  - Hypotension [Recovered/Resolved]
  - Feeling cold [Recovered/Resolved]
  - Fatigue [Recovered/Resolved]

NARRATIVE: CASE EVENT DATE: 20201230
